FAERS Safety Report 5995084-3 (Version None)
Quarter: 2008Q4

REPORT INFORMATION
  Report Type: 
  Country: None (occurrence: None)
  Receive Date: 20081210
  Receipt Date: 20081125
  Transmission Date: 20090506
  Serious: Yes (Other)
  Sender: FDA-Public Use
  Company Number: CIP08002482

PATIENT
  Age: 83 Year
  Sex: Male

DRUGS (6)
  1. RISEDRONATE SODIUM [Suspect]
     Indication: OSTEOPOROSIS PROPHYLAXIS
     Dosage: 2.5 MG DAILY, ORAL
     Route: 048
     Dates: start: 20070615, end: 20081111
  2. PREDONINE /00016201/ (PREDNISOLONE) [Concomitant]
  3. PREDONINE /00016204/ (PREDNISOLONE ACETATE) [Concomitant]
  4. ... [Concomitant]
  5. ... [Concomitant]
  6. ... [Concomitant]

REACTIONS (5)
  - CONDITION AGGRAVATED [None]
  - GINGIVAL DISORDER [None]
  - INJURY [None]
  - ORAL TORUS [None]
  - STOMATITIS [None]
